FAERS Safety Report 15542671 (Version 1)
Quarter: 2018Q4

REPORT INFORMATION
  Report Type: Spontaneous
  Country: JP (occurrence: JP)
  Receive Date: 20181023
  Receipt Date: 20181023
  Transmission Date: 20190205
  Serious: Yes (Hospitalization, Other)
  Sender: FDA-Public Use
  Company Number: JP-EPIC PHARMA LLC-2018EPC00437

PATIENT
  Age: 69 Year
  Sex: Male

DRUGS (4)
  1. BEVACIZUMAB. [Concomitant]
     Active Substance: BEVACIZUMAB
     Route: 065
  2. IRINOTECAN [Concomitant]
     Active Substance: IRINOTECAN
     Dosage: 200 MG
     Route: 065
  3. 5-FU [Concomitant]
     Active Substance: FLUOROURACIL
     Dosage: 3500 MG OF INFUSIONAL 5-FU, 600 MG OF BOLUS INJECTION OF 5-FU (MFOLFOX6 AND WITHOUT BEVACIZUMAB TREA
     Route: 065
  4. LEUCOVORIN CALCIUM. [Suspect]
     Active Substance: LEUCOVORIN CALCIUM
     Indication: COLORECTAL CANCER METASTATIC
     Dosage: 300 MG (15 CYCLESIN TOTAL WITHIN MFOLFOX6 AND/WITHOUT BEVACIZUMAB REGIMEN)
     Route: 065

REACTIONS (1)
  - Interstitial lung disease [Recovered/Resolved]
